FAERS Safety Report 8975921 (Version 1)
Quarter: 2012Q4

REPORT INFORMATION
  Report Type: Report from Study
  Country: GB (occurrence: GB)
  Receive Date: 20121219
  Receipt Date: 20121219
  Transmission Date: 20130627
  Serious: Yes (Hospitalization)
  Sender: FDA-Public Use
  Company Number: GB-JNJFOC-20121206789

PATIENT
  Age: 27 None
  Sex: Female

DRUGS (6)
  1. SIMPONI [Suspect]
     Indication: PRODUCT USED FOR UNKNOWN INDICATION
     Route: 058
  2. SIMPONI [Suspect]
     Indication: PRODUCT USED FOR UNKNOWN INDICATION
     Route: 058
     Dates: start: 20121120
  3. TRAMADOL [Concomitant]
  4. DICLOFENAC [Concomitant]
  5. AZATHIOPRINE [Concomitant]
  6. OMEPRAZOLE [Concomitant]

REACTIONS (3)
  - Laryngitis [Unknown]
  - Lower respiratory tract infection [Unknown]
  - Nasopharyngitis [Unknown]
